FAERS Safety Report 5824024-2 (Version None)
Quarter: 2008Q3

REPORT INFORMATION
  Report Type: 
  Country: None (occurrence: None)
  Receive Date: 20080728
  Receipt Date: 20080718
  Transmission Date: 20090109
  Serious: Yes (Hospitalization, Other)
  Sender: FDA-Public Use
  Company Number: HQWYE768403AUG04

PATIENT
  Sex: Female
  Weight: 59.02 kg

DRUGS (8)
  1. PREMARIN [Suspect]
     Indication: MENOPAUSE
     Dosage: 0.3 MG
     Dates: start: 19980401, end: 20020701
  2. PREMARIN [Suspect]
     Indication: OSTEOPENIA
  3. PREMARIN [Suspect]
  4. PROMETRIUM [Suspect]
     Indication: MENOPAUSE
     Dosage: 100 MG
     Dates: start: 20000501, end: 20020701
  5. PROMETRIUM [Suspect]
     Indication: OSTEOPENIA
  6. PROVERA [Suspect]
     Indication: MENOPAUSE
     Dosage: 2.5 MG
     Dates: start: 19980401, end: 20000501
  7. PROVERA [Suspect]
     Indication: OSTEOPENIA
  8. ARMOUR THYROID [Concomitant]

REACTIONS (1)
  - BREAST CANCER METASTATIC [None]
